FAERS Safety Report 9885269 (Version 1)
Quarter: 2014Q1

REPORT INFORMATION
  Report Type: Spontaneous
  Country: US (occurrence: US)
  Receive Date: 20140210
  Receipt Date: 20140210
  Transmission Date: 20141002
  Serious: No
  Sender: FDA-Public Use
  Company Number: US-PFIZER INC-2014035751

PATIENT
  Age: 67 Year
  Sex: Female

DRUGS (9)
  1. CELEBREX [Suspect]
     Dosage: UNK
  2. ZYVOX [Suspect]
     Dosage: UNK
  3. VANCOMYCIN HCL [Suspect]
     Dosage: UNK
  4. ULTRAM [Suspect]
     Dosage: UNK
  5. TRILEPTAL [Suspect]
     Dosage: UNK
  6. FLEXERIL [Suspect]
     Dosage: UNK
  7. CYMBALTA [Suspect]
     Dosage: UNK
  8. VICODIN [Suspect]
     Dosage: UNK
  9. DEMEROL [Suspect]
     Dosage: UNK

REACTIONS (1)
  - Drug hypersensitivity [Unknown]
